FAERS Safety Report 12582798 (Version 1)
Quarter: 2016Q3

REPORT INFORMATION
  Report Type: Spontaneous
  Country: US (occurrence: US)
  Receive Date: 20160722
  Receipt Date: 20160722
  Transmission Date: 20161109
  Serious: No
  Sender: FDA-Public Use
  Company Number: PHEH2016US017642

PATIENT

DRUGS (1)
  1. COSENTYX [Suspect]
     Active Substance: SECUKINUMAB
     Indication: PSORIATIC ARTHROPATHY
     Dosage: UNK UNK, QMO (ONCE MONTHLY)
     Route: 065
     Dates: start: 201604

REACTIONS (2)
  - Psoriatic arthropathy [Unknown]
  - Off label use [Unknown]

NARRATIVE: CASE EVENT DATE: 201604
